FAERS Safety Report 7532924-0 (Version None)
Quarter: 2011Q2

REPORT INFORMATION
  Report Type: 
  Country: None (occurrence: None)
  Receive Date: 20110601
  Receipt Date: 20110531
  Transmission Date: 20111010
  Serious: Yes (Other)
  Sender: FDA-Public Use
  Company Number: 2009SP036666

PATIENT
  Age: 21 Year
  Sex: Female
  Weight: 53 kg

DRUGS (2)
  1. CERAZETTE (DESOGESTREL /00754001/) [Suspect]
     Dates: start: 20110401
  2. IMPLANON [Suspect]
     Indication: PRODUCT USED FOR UNKNOWN INDICATION
     Dosage: 68 MG
     Dates: start: 20090902

REACTIONS (6)
  - PREGNANCY WITH IMPLANT CONTRACEPTIVE [None]
  - DEVICE DIFFICULT TO USE [None]
  - PELVIC INFECTION [None]
  - DRUG EXPOSURE DURING PREGNANCY [None]
  - ABORTION SPONTANEOUS [None]
  - CYSTITIS [None]
